FAERS Safety Report 7444313-8 (Version None)
Quarter: 2011Q2

REPORT INFORMATION
  Report Type: 
  Country: None (occurrence: None)
  Receive Date: 20110419
  Receipt Date: 20110415
  Transmission Date: 20111010
  Serious: Yes (Other)
  Sender: FDA-Public Use
  Company Number: CHL-AE-2011-LAM-003

PATIENT
  Age: 3 Year
  Sex: Male

DRUGS (3)
  1. CLONAZEPAM [Concomitant]
  2. LAMOTRIGINE [Suspect]
     Indication: PETIT MAL EPILEPSY
     Dosage: 4-7.8MG/KG, DAILY,
  3. LAMOTRIGINE [Suspect]
     Indication: GRAND MAL CONVULSION
     Dosage: 4-7.8MG/KG, DAILY,

REACTIONS (2)
  - OCULOGYRIC CRISIS [None]
  - TOXICITY TO VARIOUS AGENTS [None]
